FAERS Safety Report 7491062-6 (Version None)
Quarter: 2011Q2

REPORT INFORMATION
  Report Type: 
  Country: None (occurrence: None)
  Receive Date: 20110519
  Receipt Date: 20110425
  Transmission Date: 20111010
  Serious: Yes (Hospitalization, Other)
  Sender: FDA-Public Use
  Company Number: JP-ROCHE-713593

PATIENT
  Sex: Female
  Weight: 51 kg

DRUGS (18)
  1. XELODA [Suspect]
     Indication: RECTAL CANCER RECURRENT
     Route: 048
     Dates: start: 20090414, end: 20090811
  2. GAMOFA [Concomitant]
     Route: 048
     Dates: start: 20090227, end: 20110331
  3. OXALIPLATIN [Concomitant]
     Route: 041
     Dates: start: 20100412, end: 20101109
  4. LEVOFOLINATE [Concomitant]
     Route: 041
     Dates: start: 20100412, end: 20101110
  5. OXALIPLATIN [Concomitant]
     Route: 041
     Dates: start: 20091201, end: 20100318
  6. DEPAS [Concomitant]
     Route: 048
     Dates: start: 20090617, end: 20110331
  7. ALPRAZOLAM [Concomitant]
     Route: 048
     Dates: start: 20090617, end: 20110331
  8. FLUOROURACIL [Concomitant]
     Route: 040
     Dates: start: 20100412, end: 20101101
  9. LEVOFOLINATE [Concomitant]
     Route: 041
     Dates: start: 20091201, end: 20100319
  10. AVASTIN [Suspect]
     Indication: RECTAL CANCER RECURRENT
     Route: 041
     Dates: start: 20100413, end: 20100608
  11. FLUOROURACIL [Concomitant]
     Route: 040
     Dates: start: 20091201, end: 20100301
  12. BENZALIN [Concomitant]
     Route: 048
     Dates: start: 20090310, end: 20110331
  13. ROHYPNOL [Concomitant]
     Route: 048
     Dates: start: 20090303, end: 20110331
  14. FLUOROURACIL [Concomitant]
     Route: 040
     Dates: start: 20091201, end: 20100319
  15. FLUOROURACIL [Concomitant]
     Route: 040
     Dates: start: 20100412, end: 20101110
  16. ADONA [Concomitant]
     Route: 048
     Dates: start: 20100118, end: 20100702
  17. BUSCOPAN [Concomitant]
     Route: 048
     Dates: start: 20090311, end: 20110331
  18. TRANSAMIN [Concomitant]
     Route: 048
     Dates: start: 20100531, end: 20100702

REACTIONS (5)
  - ARTHRALGIA [None]
  - HEADACHE [None]
  - HYPERTHYROIDISM [None]
  - PULMONARY HYPERTENSION [None]
  - PULMONARY EMBOLISM [None]
